FAERS Safety Report 8956158 (Version 1)
Quarter: 2012Q4

REPORT INFORMATION
  Report Type: 
  Country: US (occurrence: US)
  Receive Date: 20121210
  Receipt Date: 20121210
  Transmission Date: 20130627
  Serious: Yes (Hospitalization)
  Sender: FDA-Public Use
  Company Number: PHHY2012US112427

PATIENT
  Sex: Female

DRUGS (4)
  1. METOPROLOL [Suspect]
     Indication: HYPERTENSION
     Dosage: 25 mg, UNK
     Route: 048
  2. LISINOPRIL [Concomitant]
  3. AMLODIPINE [Concomitant]
  4. TUMS [Concomitant]

REACTIONS (5)
  - Gastritis [Unknown]
  - Abasia [Unknown]
  - Infection [Unknown]
  - Hypertension [Unknown]
  - Arthritis [Unknown]
